FAERS Safety Report 7538548-3 (Version None)
Quarter: 2011Q2

REPORT INFORMATION
  Report Type: 
  Country: None (occurrence: None)
  Receive Date: 20110610
  Receipt Date: 20110603
  Transmission Date: 20111010
  Serious: Yes (Hospitalization, Other)
  Sender: FDA-Public Use
  Company Number: US-BIOGENIDEC-2011BI005545

PATIENT
  Sex: Female

DRUGS (2)
  1. AVONEX [Suspect]
     Indication: MULTIPLE SCLEROSIS
     Route: 030
     Dates: start: 20070304
  2. AVONEX [Suspect]
     Route: 030
     Dates: start: 20011101, end: 20060514

REACTIONS (2)
  - NEOPLASM MALIGNANT [None]
  - METASTATIC NEOPLASM [None]
